FAERS Safety Report 5731641-7 (Version None)
Quarter: 2008Q2

REPORT INFORMATION
  Report Type: 
  Country: None (occurrence: None)
  Receive Date: 20080508
  Receipt Date: 20080428
  Transmission Date: 20081010
  Serious: Yes (Hospitalization)
  Sender: FDA-Public Use
  Company Number: US-AMGEN-US017239

PATIENT
  Sex: Female

DRUGS (11)
  1. KINERET [Suspect]
     Indication: RHEUMATOID ARTHRITIS
     Route: 058
     Dates: start: 20020717, end: 20030710
  2. ENBREL [Suspect]
     Route: 048
     Dates: start: 19920101
  3. ENBREL [Suspect]
     Route: 065
  4. ENBREL [Suspect]
     Route: 048
     Dates: start: 20020311, end: 20020717
  5. TAMOXIFEN CITRATE [Concomitant]
     Route: 065
  6. NEXIUM [Concomitant]
     Route: 065
  7. FOSAMAX [Concomitant]
     Route: 065
  8. ZOLOFT [Concomitant]
     Route: 065
  9. FENTANYL [Concomitant]
     Route: 061
  10. ATIVAN [Concomitant]
     Route: 065
  11. VIOXX [Concomitant]
     Route: 065

REACTIONS (1)
  - PYELONEPHRITIS [None]
